FAERS Safety Report 25907967 (Version 3)
Quarter: 2025Q4

REPORT INFORMATION
  Report Type: Spontaneous
  Country: JP (occurrence: JP)
  Receive Date: 20251010
  Receipt Date: 20251112
  Transmission Date: 20260118
  Serious: Yes (Other)
  Sender: UCB
  Company Number: JP-UCBJ-CD202513519UCBPHAPROD

PATIENT
  Age: 8 Decade

DRUGS (6)
  1. BRIVIACT [Suspect]
     Active Substance: BRIVARACETAM
     Indication: Partial seizures with secondary generalisation
     Dosage: 200 MILLIGRAM (DAILY)
  2. VIMPAT [Suspect]
     Active Substance: LACOSAMIDE
     Indication: Partial seizures with secondary generalisation
     Dosage: 200 MILLIGRAM (DAILY)
  3. VIMPAT [Suspect]
     Active Substance: LACOSAMIDE
     Dosage: 400 MILLIGRAM (DAILY)
  4. PERAMPANEL [Concomitant]
     Active Substance: PERAMPANEL
     Indication: Partial seizures with secondary generalisation
     Dosage: 2 MILLIGRAM (DAILY)
  5. PERAMPANEL [Concomitant]
     Active Substance: PERAMPANEL
     Dosage: 4 MILLIGRAM (DAILY)
  6. LEVETIRACETAM [Concomitant]
     Active Substance: LEVETIRACETAM
     Indication: Partial seizures with secondary generalisation
     Dosage: 2500 MILLIGRAM (DAILY)

REACTIONS (2)
  - Epilepsy [Recovered/Resolved]
  - Dizziness [Recovered/Resolved]
